FAERS Safety Report 17691241 (Version 2)
Quarter: 2020Q2

REPORT INFORMATION
  Report Type: Report from Study
  Country: BE (occurrence: BE)
  Receive Date: 20200422
  Receipt Date: 20200529
  Transmission Date: 20200714
  Serious: Yes (Other)
  Sender: FDA-Public Use
  Company Number: BE-AMGEN-BELNI2020065702

PATIENT
  Age: 54 Year
  Sex: Male

DRUGS (5)
  1. ERENUMAB [Suspect]
     Active Substance: ERENUMAB
     Dosage: 140 MILLIGRAM *SINGLE
     Route: 065
     Dates: start: 20200408
  2. ERENUMAB [Suspect]
     Active Substance: ERENUMAB
     Dosage: UNK
     Route: 065
     Dates: start: 20200228
  3. ERENUMAB [Suspect]
     Active Substance: ERENUMAB
     Indication: MIGRAINE
     Dosage: 70 MILLIGRAM *SINGLE
     Route: 065
     Dates: start: 201909
  4. ERENUMAB [Suspect]
     Active Substance: ERENUMAB
     Dosage: UNK
     Route: 065
     Dates: start: 20200309
  5. ERENUMAB [Suspect]
     Active Substance: ERENUMAB
     Dosage: 140 MILLIGRAM *SINGLE
     Route: 065
     Dates: start: 202001

REACTIONS (1)
  - Transient global amnesia [Recovered/Resolved]

NARRATIVE: CASE EVENT DATE: 20200414
